FAERS Safety Report 20286469 (Version 1)
Quarter: 2022Q1

REPORT INFORMATION
  Report Type: Spontaneous
  Country: IT (occurrence: IT)
  Receive Date: 20220103
  Receipt Date: 20220103
  Transmission Date: 20220423
  Serious: Yes (Other)
  Sender: FDA-Public Use
  Company Number: None

PATIENT
  Age: 58 Year
  Sex: Female
  Weight: 48 kg

DRUGS (9)
  1. PACLITAXEL [Suspect]
     Active Substance: PACLITAXEL
     Indication: Breast cancer
     Route: 042
     Dates: start: 20210805, end: 20210923
  2. EPIRUBICIN [Suspect]
     Active Substance: EPIRUBICIN
     Indication: Breast cancer
     Route: 042
     Dates: start: 20210630, end: 20210715
  3. CYCLOPHOSPHAMIDE [Suspect]
     Active Substance: CYCLOPHOSPHAMIDE
     Indication: Breast cancer
     Route: 042
     Dates: start: 20210630, end: 20210715
  4. RAMIPRIL [Concomitant]
     Active Substance: RAMIPRIL
  5. OMEPRAZOLE [Concomitant]
     Active Substance: OMEPRAZOLE
     Route: 048
  6. HYDROCHLOROTHIAZIDE\NEBIVOLOL HYDROCHLORIDE [Concomitant]
     Active Substance: HYDROCHLOROTHIAZIDE\NEBIVOLOL HYDROCHLORIDE
     Dosage: 5 MG / 12.5 MG
     Route: 048
  7. SITAGLIPTIN PHOSPHATE [Concomitant]
     Active Substance: SITAGLIPTIN PHOSPHATE
  8. AMLODIPINE [Concomitant]
     Active Substance: AMLODIPINE BESYLATE
     Route: 048
  9. METFORMIN HYDROCHLORIDE [Concomitant]
     Active Substance: METFORMIN HYDROCHLORIDE
     Indication: Diabetes mellitus
     Dosage: 500 MG
     Route: 048

REACTIONS (1)
  - Cardiotoxicity [Recovered/Resolved]

NARRATIVE: CASE EVENT DATE: 20210916
